FAERS Safety Report 17429574 (Version 3)
Quarter: 2020Q2

REPORT INFORMATION
  Report Type: Spontaneous
  Country: DE (occurrence: DE)
  Receive Date: 20200218
  Receipt Date: 20200417
  Transmission Date: 20200713
  Serious: Yes (Hospitalization, Other)
  Sender: FDA-Public Use
  Company Number: DE-FERRINGPH-2020FE00774

PATIENT
  Age: 42 Year
  Sex: Female

DRUGS (4)
  1. ORGALUTRAN [Concomitant]
     Active Substance: GANIRELIX ACETATE
     Indication: PRODUCT USED FOR UNKNOWN INDICATION
     Dosage: UNK
     Route: 065
     Dates: start: 20191113, end: 20191116
  2. MENOGON HP [Suspect]
     Active Substance: MENOTROPINS
     Indication: ASSISTED REPRODUCTIVE TECHNOLOGY
     Route: 065
     Dates: start: 20191109, end: 20191115
  3. CLOMIFEN [Suspect]
     Active Substance: CLOMIPHENE
     Indication: ASSISTED REPRODUCTIVE TECHNOLOGY
     Dosage: 3X50 MG
     Route: 065
     Dates: start: 20191109, end: 20191113
  4. OVITRELLE [Concomitant]
     Active Substance: CHORIOGONADOTROPIN ALFA
     Indication: ASSISTED REPRODUCTIVE TECHNOLOGY
     Route: 065
     Dates: start: 20191116

REACTIONS (1)
  - Ovarian haemorrhage [Recovered/Resolved]

NARRATIVE: CASE EVENT DATE: 20191119
